FAERS Safety Report 9966250 (Version 1)
Quarter: 2014Q1

REPORT INFORMATION
  Report Type: Report from Study
  Country: US (occurrence: US)
  Receive Date: 20140305
  Receipt Date: 20140305
  Transmission Date: 20141002
  Serious: Yes (Hospitalization)
  Sender: FDA-Public Use
  Company Number: US-ABBVIE-13P-163-1120479-00

PATIENT
  Age: 32 Year
  Sex: Female
  Weight: 69.01 kg

DRUGS (5)
  1. HUMIRA [Suspect]
     Indication: CROHN^S DISEASE
     Dates: start: 201111, end: 201111
  2. HUMIRA [Suspect]
     Dates: start: 2011, end: 2011
  3. HUMIRA [Suspect]
     Dates: start: 2011, end: 201302
  4. CELEXA [Concomitant]
     Indication: DEPRESSION
  5. NUVARING [Concomitant]
     Indication: CONTRACEPTION

REACTIONS (6)
  - Abdominal pain [Not Recovered/Not Resolved]
  - Gastrooesophageal reflux disease [Not Recovered/Not Resolved]
  - Enteritis [Unknown]
  - Drug ineffective [Not Recovered/Not Resolved]
  - Diarrhoea [Not Recovered/Not Resolved]
  - Abdominal pain [Not Recovered/Not Resolved]
